FAERS Safety Report 10035390 (Version 1)
Quarter: 2014Q1

REPORT INFORMATION
  Report Type: Spontaneous
  Country: US (occurrence: US)
  Receive Date: 20140325
  Receipt Date: 20140325
  Transmission Date: 20141002
  Serious: No
  Sender: FDA-Public Use
  Company Number: US-PFIZER INC-2014081085

PATIENT
  Age: 58 Year
  Sex: Female
  Weight: 102.95 kg

DRUGS (6)
  1. LYRICA [Suspect]
     Indication: FIBROMYALGIA
     Dosage: 75 MG, 3X/DAY
     Route: 048
  2. ZOLOFT [Suspect]
     Dosage: 50 MG, 1X/DAY
  3. CENTRUM SILVER [Concomitant]
     Dosage: UNK
  4. ADVIL [Concomitant]
     Dosage: 400 MG, AS NEEDED
  5. ESTRADIOL [Concomitant]
     Dosage: 2 MG, 1X/DAY
  6. ZOLPIDEM [Concomitant]

REACTIONS (8)
  - Arthralgia [Unknown]
  - Myalgia [Unknown]
  - Bursitis [Unknown]
  - Sleep disorder [Unknown]
  - Musculoskeletal pain [Unknown]
  - Ecchymosis [Unknown]
  - Rash [Unknown]
  - Pain in extremity [Unknown]
